FAERS Safety Report 18685640 (Version 5)
Quarter: 2021Q1

REPORT INFORMATION
  Report Type: Spontaneous
  Country: GB (occurrence: GB)
  Receive Date: 20201231
  Receipt Date: 20210125
  Transmission Date: 20210419
  Serious: Yes (Other)
  Sender: FDA-Public Use
  Company Number: GB-TEVA-2020-GB-1863891

PATIENT
  Age: 83 Year
  Sex: Female
  Weight: 45 kg

DRUGS (26)
  1. BRINZOLAMIDE [Concomitant]
     Active Substance: BRINZOLAMIDE
     Dosage: 2 GTT DAILY; 2 DRP, (BOTH EYES)
     Route: 065
     Dates: start: 20200306
  2. LATANOPROST. [Concomitant]
     Active Substance: LATANOPROST
     Indication: PRODUCT USED FOR UNKNOWN INDICATION
     Dosage: 2 GTT DAILY; ONE DROP AT NIGHT TO BOTH EYES
     Route: 065
     Dates: start: 20200818
  3. HYDROCORTISONE. [Concomitant]
     Active Substance: HYDROCORTISONE
     Indication: PRODUCT USED FOR UNKNOWN INDICATION
     Dosage: 2 DOSAGE FORMS DAILY; APPLY THINLY. CONTAINS A MILD STEROID.2 DF
     Route: 065
     Dates: start: 20201016, end: 20201115
  4. NITROFURANTOIN. [Concomitant]
     Active Substance: NITROFURANTOIN
     Indication: PRODUCT USED FOR UNKNOWN INDICATION
     Dosage: 2 DOSAGE FORMS DAILY; FOR THREE DAYS TO TREAT A ...2 DF
     Route: 065
     Dates: start: 20201001, end: 20201004
  5. CARMELLOSE [Concomitant]
     Active Substance: CARBOXYMETHYLCELLULOSE
     Indication: PRODUCT USED FOR UNKNOWN INDICATION
     Dosage: 8 GTT DAILY; BOTH EYES ONE DROP
     Route: 065
     Dates: start: 20200306
  6. FORTISIP [Concomitant]
     Active Substance: CARBOHYDRATES\FATTY ACIDS\MINERALS\PROTEIN\VITAMINS
     Indication: PRODUCT USED FOR UNKNOWN INDICATION
     Dosage: 2 DOSAGE FORMS DAILY;
     Route: 065
     Dates: start: 20201207
  7. ATORVASTATIN [Suspect]
     Active Substance: ATORVASTATIN
     Indication: BLOOD CHOLESTEROL INCREASED
     Dosage: 40 MILLIGRAM DAILY;
     Route: 065
     Dates: start: 20200923
  8. CARMELLOSE [Concomitant]
     Active Substance: CARBOXYMETHYLCELLULOSE
     Dosage: 4 GTT DAILY; 4 DRP, (BOTH EYES)
     Route: 065
     Dates: start: 20200306
  9. DESUNIN [Concomitant]
     Active Substance: CHOLECALCIFEROL
     Indication: PRODUCT USED FOR UNKNOWN INDICATION
     Dosage: 1 DOSAGE FORMS DAILY; FOR THE TREATMENT OR PREVENTION ...
     Route: 065
     Dates: start: 20200618
  10. BRINZOLAMIDE [Concomitant]
     Active Substance: BRINZOLAMIDE
     Indication: PRODUCT USED FOR UNKNOWN INDICATION
     Dosage: 4 GTT DAILY; DROP INTO BOTH EYES TO LOW., 4 GTT
     Route: 065
     Dates: start: 20200306
  11. ADCAL [Concomitant]
     Indication: PRODUCT USED FOR UNKNOWN INDICATION
     Dosage: 2 DOSAGE FORMS DAILY; SUCK OR CHEW ONE TABLET TWICE A DAY TO STRENGTH. UNIT DOSE : 1 DOSAGE FORMS
     Route: 065
     Dates: start: 20200306
  12. ATENOLOL. [Concomitant]
     Active Substance: ATENOLOL
     Indication: PRODUCT USED FOR UNKNOWN INDICATION
     Dosage: 2 DOSAGE FORMS DAILY;
     Route: 065
     Dates: start: 20200818
  13. CLOPIDOGREL [Concomitant]
     Active Substance: CLOPIDOGREL BISULFATE
     Indication: ANTICOAGULANT THERAPY
     Dosage: 1 DOSAGE FORMS DAILY; TO THIN THE BLOOD
     Route: 065
     Dates: start: 20200923, end: 20201127
  14. MIRABEGRON [Concomitant]
     Active Substance: MIRABEGRON
     Indication: PRODUCT USED FOR UNKNOWN INDICATION
     Dosage: 1 DOSAGE FORMS DAILY;
     Route: 065
     Dates: start: 20201203
  15. ADCAL [Concomitant]
     Dosage: 2 DOSAGE FORMS DAILY; (TO STRENGTH)
     Route: 065
     Dates: start: 20200306
  16. DOCUSATE SODIUM. [Concomitant]
     Active Substance: DOCUSATE SODIUM
     Indication: CONSTIPATION
     Dosage: 4 DOSAGE FORMS DAILY;
     Route: 065
     Dates: start: 20201209
  17. RAMIPRIL. [Concomitant]
     Active Substance: RAMIPRIL
     Indication: PRODUCT USED FOR UNKNOWN INDICATION
     Dosage: 1 DOSAGE FORMS DAILY;
     Route: 065
     Dates: start: 20200306
  18. ATORVASTATIN [Suspect]
     Active Substance: ATORVASTATIN
     Indication: HYPERCHOLESTEROLAEMIA
  19. LANSOPRAZOLE. [Concomitant]
     Active Substance: LANSOPRAZOLE
     Indication: PRODUCT USED FOR UNKNOWN INDICATION
     Dosage: 2 DOSAGE FORMS DAILY; 2 DF TO REDUCE STOMACH ...
     Route: 065
     Dates: start: 20200306
  20. MEBEVERINE HYDROCHLORIDE [Concomitant]
     Active Substance: MEBEVERINE HYDROCHLORIDE
     Indication: PRODUCT USED FOR UNKNOWN INDICATION
     Dosage: 3 DOSAGE FORMS DAILY; 3 DF, FOR IRRITABLE.
     Route: 065
     Dates: start: 20200306
  21. TIBOLONE [Concomitant]
     Active Substance: TIBOLONE
     Indication: PRODUCT USED FOR UNKNOWN INDICATION
     Dosage: 1 DOSAGE FORMS DAILY;
     Route: 065
     Dates: start: 20200818
  22. CARBOCISTEINE [Concomitant]
     Active Substance: CARBOCYSTEINE
     Indication: PRODUCT USED FOR UNKNOWN INDICATION
     Dosage: 4 DOSAGE FORMS DAILY;  AS A MAINTENANCE ...
     Route: 065
     Dates: start: 20200818
  23. ISPAGHULA EXTRACT\PSYLLIUM [Concomitant]
     Active Substance: HERBALS\PLANTAGO OVATA SEED\PLANTAGO SEED
     Indication: PRODUCT USED FOR UNKNOWN INDICATION
     Dosage: 2 DOSAGE FORMS DAILY;
     Route: 065
     Dates: start: 20200818
  24. CLOTRIMAZOLE. [Concomitant]
     Active Substance: CLOTRIMAZOLE
     Indication: PRODUCT USED FOR UNKNOWN INDICATION
     Dosage: 1 DOSAGE FORMS DAILY; 1 DOSAGE FORMS DAILY; GENTLY INSERT ONE INTO THE VAGINA AT NIGHT
     Route: 067
     Dates: start: 20201001, end: 20201002
  25. EDOXABAN [Concomitant]
     Active Substance: EDOXABAN TOSYLATE
     Indication: ANTICOAGULANT THERAPY
     Dosage: 1 DOSAGE FORMS DAILY; (THIS IS AN ANTICOA.
     Route: 065
     Dates: start: 20201127
  26. LATANOPROST. [Concomitant]
     Active Substance: LATANOPROST
     Dosage: 1 GTT DAILY; (AT NIGHT TO BOTH EYES)
     Route: 065
     Dates: start: 20200818

REACTIONS (2)
  - Acute hepatic failure [Recovering/Resolving]
  - Liver function test abnormal [Unknown]

NARRATIVE: CASE EVENT DATE: 20201210
